FAERS Safety Report 7658515-9 (Version None)
Quarter: 2011Q3

REPORT INFORMATION
  Report Type: 
  Country: None (occurrence: None)
  Receive Date: 20110805
  Receipt Date: 20110721
  Transmission Date: 20111222
  Serious: Yes (Other)
  Sender: FDA-Public Use
  Company Number: US-ELI_LILLY_AND_COMPANY-US201107007690

PATIENT
  Age: 90 Year
  Sex: Female

DRUGS (5)
  1. ARIMIDEX [Concomitant]
  2. TAMOXIFEN CITRATE [Concomitant]
  3. FORTEO [Suspect]
     Dosage: 20 UG, QD
  4. EVISTA [Suspect]
     Dosage: 60 MG, QD
  5. OXYGEN [Concomitant]

REACTIONS (1)
  - BREAST CANCER METASTATIC [None]
